FAERS Safety Report 15295556 (Version 2)
Quarter: 2018Q3

REPORT INFORMATION
  Report Type: Spontaneous
  Country: AT (occurrence: AT)
  Receive Date: 20180820
  Receipt Date: 20180821
  Transmission Date: 20181010
  Serious: Yes (Other)
  Sender: FDA-Public Use
  Company Number: PHHY2018AT074164

PATIENT
  Age: 28 Year
  Sex: Female
  Weight: 65 kg

DRUGS (54)
  1. ACETYLSALICYLIC ACID [Suspect]
     Active Substance: ASPIRIN
     Dosage: 40 MG, QD
     Route: 065
     Dates: start: 20161216, end: 20161219
  2. OXAZEPAM. [Suspect]
     Active Substance: OXAZEPAM
     Dosage: 30 MG, QD
     Route: 065
     Dates: start: 20161221, end: 20161223
  3. DOXAZOSIN [Concomitant]
     Active Substance: DOXAZOSIN\DOXAZOSIN MESYLATE
     Dosage: 2 MG, QD
     Route: 065
     Dates: start: 20170107, end: 20170108
  4. LAMOTRIGIN [Concomitant]
     Active Substance: LAMOTRIGINE
     Dosage: 175 MG, QD
     Route: 065
     Dates: start: 20170117, end: 20170123
  5. LAMICTAL [Concomitant]
     Active Substance: LAMOTRIGINE
     Dosage: 200 MG, UNK
     Route: 065
  6. LAMICTAL [Concomitant]
     Active Substance: LAMOTRIGINE
     Dosage: 225 MG, UNK
     Route: 065
  7. CITALOPRAM [Suspect]
     Active Substance: CITALOPRAM HYDROBROMIDE
     Dosage: 20 MG, QD
     Route: 065
     Dates: start: 20161225, end: 20161225
  8. LAMOTRIGIN [Concomitant]
     Active Substance: LAMOTRIGINE
     Dosage: 75 MG, QD
     Route: 065
     Dates: start: 20161220, end: 20161226
  9. LAMICTAL [Concomitant]
     Active Substance: LAMOTRIGINE
     Indication: PRODUCT USED FOR UNKNOWN INDICATION
     Dosage: 50 MG, UNK
     Route: 065
  10. OXAZEPAM. [Suspect]
     Active Substance: OXAZEPAM
     Dosage: 15 MG, UNK
     Route: 065
  11. DOXAZOSIN [Concomitant]
     Active Substance: DOXAZOSIN\DOXAZOSIN MESYLATE
     Dosage: 1 MG, UNK
     Route: 065
  12. INDERAL [Concomitant]
     Active Substance: PROPRANOLOL HYDROCHLORIDE
     Dosage: 10 MG, QD
     Route: 065
     Dates: start: 20161215, end: 20161217
  13. LAMICTAL [Concomitant]
     Active Substance: LAMOTRIGINE
     Dosage: 150 MG, UNK
     Route: 065
  14. LAMICTAL [Concomitant]
     Active Substance: LAMOTRIGINE
     Dosage: 75 MG, UNK
     Route: 065
  15. PROTHIPENDYL HYDROCHLORIDE [Suspect]
     Active Substance: PROTHIPENDYL HYDROCHLORIDE
     Indication: PRODUCT USED FOR UNKNOWN INDICATION
     Dosage: 80 MG, UNK
     Route: 065
  16. DOXAZOSIN [Concomitant]
     Active Substance: DOXAZOSIN\DOXAZOSIN MESYLATE
     Dosage: 2 MG, UNK
     Route: 065
  17. INDERAL [Concomitant]
     Active Substance: PROPRANOLOL HYDROCHLORIDE
     Dosage: 10 MG, QD
     Route: 065
     Dates: start: 20170111, end: 20170113
  18. INDERAL [Concomitant]
     Active Substance: PROPRANOLOL HYDROCHLORIDE
     Dosage: 10 MG, UNK
     Route: 065
  19. CITALOPRAM [Suspect]
     Active Substance: CITALOPRAM HYDROBROMIDE
     Indication: PRODUCT USED FOR UNKNOWN INDICATION
     Dosage: 10 MG, QD
     Route: 065
     Dates: start: 20161223, end: 20161224
  20. WELLBUTRIN [Concomitant]
     Active Substance: BUPROPION HYDROCHLORIDE
     Dosage: 150 MG, QD
     Route: 065
     Dates: start: 20170118
  21. TEMESTA [Concomitant]
     Indication: PRODUCT USED FOR UNKNOWN INDICATION
     Dosage: 1 MG, QD
     Route: 065
     Dates: start: 20161223, end: 20161224
  22. LAMOTRIGIN [Concomitant]
     Active Substance: LAMOTRIGINE
     Dosage: 225 MG, QD
     Route: 065
     Dates: start: 20170109, end: 20170109
  23. LAMOTRIGIN [Concomitant]
     Active Substance: LAMOTRIGINE
     Dosage: 150 MG, QD
     Route: 065
     Dates: start: 20170110, end: 20170116
  24. LAMICTAL [Concomitant]
     Active Substance: LAMOTRIGINE
     Dosage: 125 MG, UNK
     Route: 065
  25. ACETYLSALICYLIC ACID [Suspect]
     Active Substance: ASPIRIN
     Dosage: 80 MG, QD
     Route: 065
     Dates: start: 20161220, end: 20161226
  26. PROTHIPENDYL HYDROCHLORIDE [Suspect]
     Active Substance: PROTHIPENDYL HYDROCHLORIDE
     Dosage: 40 MG, UNK
     Route: 065
  27. DOXAZOSIN [Concomitant]
     Active Substance: DOXAZOSIN\DOXAZOSIN MESYLATE
     Dosage: 2 MG, QD
     Route: 065
     Dates: start: 20170108
  28. WELLBUTRIN [Concomitant]
     Active Substance: BUPROPION HYDROCHLORIDE
     Dosage: 300 MG, QD
     Route: 065
     Dates: start: 20170111, end: 20170117
  29. TEMESTA [Concomitant]
     Dosage: 1 MG, UNK
     Route: 065
  30. INDERAL [Concomitant]
     Active Substance: PROPRANOLOL HYDROCHLORIDE
     Dosage: 10 MG, QD
     Route: 065
     Dates: start: 20161220, end: 20161226
  31. OXAZEPAM. [Suspect]
     Active Substance: OXAZEPAM
     Indication: PRODUCT USED FOR UNKNOWN INDICATION
     Dosage: 15 MG, QD
     Route: 065
     Dates: start: 20161208, end: 20161208
  32. DOXAZOSIN [Concomitant]
     Active Substance: DOXAZOSIN\DOXAZOSIN MESYLATE
     Dosage: 1 MG, QD
     Route: 065
     Dates: start: 20170103, end: 20170106
  33. WELLBUTRIN [Concomitant]
     Active Substance: BUPROPION HYDROCHLORIDE
     Indication: PRODUCT USED FOR UNKNOWN INDICATION
     Dosage: 150 MG, UNK
     Route: 065
     Dates: start: 20161207, end: 20161215
  34. WELLBUTRIN [Concomitant]
     Active Substance: BUPROPION HYDROCHLORIDE
     Dosage: 150 MG, QD
     Route: 065
     Dates: start: 20161227, end: 20170110
  35. TEMESTA [Concomitant]
     Dosage: 1.5 MG, QD
     Route: 065
     Dates: start: 20161225, end: 20161225
  36. TEMESTA [Concomitant]
     Dosage: 1 MG, QD
     Route: 065
     Dates: start: 20161226, end: 20161226
  37. LAMOTRIGIN [Concomitant]
     Active Substance: LAMOTRIGINE
     Indication: PRODUCT USED FOR UNKNOWN INDICATION
     Dosage: 25 MG, QD
     Route: 065
     Dates: start: 201611, end: 20161212
  38. LAMOTRIGIN [Concomitant]
     Active Substance: LAMOTRIGINE
     Dosage: 50 MG, QD
     Route: 065
     Dates: start: 20161213, end: 20161219
  39. LAMOTRIGIN [Concomitant]
     Active Substance: LAMOTRIGINE
     Dosage: 200 MG, QD
     Route: 065
     Dates: start: 20170124
  40. INDERAL [Concomitant]
     Active Substance: PROPRANOLOL HYDROCHLORIDE
     Indication: PRODUCT USED FOR UNKNOWN INDICATION
     Dosage: 1 OT, QD
     Route: 065
     Dates: start: 20161208, end: 20161213
  41. INDERAL [Concomitant]
     Active Substance: PROPRANOLOL HYDROCHLORIDE
     Dosage: 10 MG, QD
     Route: 065
     Dates: start: 20170113
  42. LAMICTAL [Concomitant]
     Active Substance: LAMOTRIGINE
     Dosage: 25 MG, UNK
     Route: 065
  43. ACETYLSALICYLIC ACID [Suspect]
     Active Substance: ASPIRIN
     Indication: PRODUCT USED FOR UNKNOWN INDICATION
     Dosage: 80 MG, QD
     Route: 065
     Dates: start: 20161215, end: 20161215
  44. OXAZEPAM. [Suspect]
     Active Substance: OXAZEPAM
     Dosage: 15 MG, QD
     Route: 065
     Dates: start: 20161224, end: 20161224
  45. OXAZEPAM. [Suspect]
     Active Substance: OXAZEPAM
     Dosage: 15 MG, QD
     Route: 065
     Dates: start: 20161224
  46. DOXAZOSIN [Concomitant]
     Active Substance: DOXAZOSIN\DOXAZOSIN MESYLATE
     Indication: PRODUCT USED FOR UNKNOWN INDICATION
     Dosage: 2 MG, QD
     Route: 065
     Dates: start: 20161223, end: 20161224
  47. TEMESTA [Concomitant]
     Dosage: 0.5 MG, QD
     Route: 065
     Dates: start: 20161227, end: 20161227
  48. TEMESTA [Concomitant]
     Dosage: 0.5 MG, QD
     Route: 065
     Dates: start: 20161227
  49. LAMOTRIGIN [Concomitant]
     Active Substance: LAMOTRIGINE
     Dosage: 100 MG, QD
     Route: 065
     Dates: start: 20161227, end: 20170102
  50. LAMOTRIGIN [Concomitant]
     Active Substance: LAMOTRIGINE
     Dosage: 125 MG, QD
     Route: 065
     Dates: start: 20170103, end: 20170108
  51. INDERAL [Concomitant]
     Active Substance: PROPRANOLOL HYDROCHLORIDE
     Dosage: 10 MG, QD
     Route: 065
     Dates: start: 20161231, end: 20161231
  52. OLEOVIT [Concomitant]
     Indication: PRODUCT USED FOR UNKNOWN INDICATION
     Dosage: 30 GTT, QW
     Route: 065
  53. LAMICTAL [Concomitant]
     Active Substance: LAMOTRIGINE
     Dosage: 100 MG, UNK
     Route: 065
  54. LAMICTAL [Concomitant]
     Active Substance: LAMOTRIGINE
     Dosage: 175 MG, UNK
     Route: 065

REACTIONS (3)
  - Galactorrhoea [Recovering/Resolving]
  - Nightmare [Unknown]
  - Visual impairment [Unknown]

NARRATIVE: CASE EVENT DATE: 20161224
